FAERS Safety Report 5631939-7 (Version None)
Quarter: 2008Q1

REPORT INFORMATION
  Report Type: 
  Country: None (occurrence: None)
  Receive Date: 20080212
  Receipt Date: 20080204
  Transmission Date: 20080703
  Serious: Yes (Death, Other)
  Sender: FDA-Public Use
  Company Number: 2007SP025314

PATIENT
  Age: 60 Year
  Sex: Male

DRUGS (34)
  1. TEMODAL [Suspect]
     Indication: GLIOBLASTOMA
     Dosage: SEE IMAGE
     Dates: start: 20070521, end: 20070708
  2. TEMODAL [Suspect]
     Indication: GLIOBLASTOMA
     Dosage: SEE IMAGE
     Dates: start: 20070806, end: 20070810
  3. TEMODAL [Suspect]
     Indication: GLIOBLASTOMA
     Dosage: SEE IMAGE
     Dates: start: 20070903, end: 20070907
  4. TEMODAL [Suspect]
     Indication: GLIOBLASTOMA
     Dosage: SEE IMAGE
     Dates: start: 20071001, end: 20071005
  5. TEMODAL [Suspect]
     Indication: GLIOBLASTOMA
     Dosage: SEE IMAGE
     Dates: start: 20071029, end: 20071102
  6. TEMODAL [Suspect]
     Indication: GLIOBLASTOMA
     Dosage: SEE IMAGE
     Dates: start: 20071126, end: 20071201
  7. DEXAMETHASONE TAB [Suspect]
     Indication: PALLIATIVE CARE
     Dates: end: 20071201
  8. CIPRAMIL [Concomitant]
  9. SPIRESIS [Concomitant]
  10. PANTOPRAZOLE SODIUM [Concomitant]
  11. FURESIS [Concomitant]
  12. CARDACE [Concomitant]
  13. MOVICOL [Concomitant]
  14. KALISOL [Concomitant]
  15. VISCOTEARS [Concomitant]
  16. BETOLVEX [B-12 VITAMIN INJECTIONS] [Concomitant]
  17. OXANEST [Concomitant]
  18. PARA-TABS [Concomitant]
  19. VOLTAREN [Concomitant]
  20. CLONIDINE HCL [Concomitant]
  21. COTRIM DS [Concomitant]
  22. HUMALOG [Concomitant]
  23. PROTAPHANE [ISOPHANE INSULIN] [Concomitant]
  24. NOVORAPID [Concomitant]
  25. NOVOLOG MIX 70/30 [Concomitant]
  26. CRAMPITON [Concomitant]
  27. PROCHLORPERAZINE [Concomitant]
  28. OMEPRAZOLE [Concomitant]
  29. NEXIUM [Concomitant]
  30. DUPHALAC [Concomitant]
  31. DETRUSITOL [Concomitant]
  32. EXOCIN [Concomitant]
  33. PANACOD [Concomitant]
  34. AMLODIPINE [Suspect]
     Indication: DRUG USE FOR UNKNOWN INDICATION

REACTIONS (7)
  - BRAIN INJURY [None]
  - DIABETES MELLITUS [None]
  - LOSS OF CONSCIOUSNESS [None]
  - NERVOUS SYSTEM DISORDER [None]
  - OEDEMA PERIPHERAL [None]
  - PNEUMONIA [None]
  - RADIATION INJURY [None]
